FAERS Safety Report 5576043-1 (Version None)
Quarter: 2007Q4

REPORT INFORMATION
  Report Type: 
  Country: None (occurrence: None)
  Receive Date: 20071228
  Receipt Date: 20071206
  Transmission Date: 20080405
  Serious: No
  Sender: FDA-Public Use
  Company Number: A0697737A

PATIENT
  Age: 6 Year
  Sex: Female

DRUGS (3)
  1. ADVAIR DISKUS 100/50 [Suspect]
     Indication: ASTHMA
     Dosage: 1PUFF TWICE PER DAY
     Route: 055
     Dates: start: 20060301
  2. NASAL SPRAY [Concomitant]
  3. ACID REFLUX MED. [Concomitant]

REACTIONS (1)
  - INFECTION [None]
